FAERS Safety Report 18650993 (Version 1)
Quarter: 2020Q4

REPORT INFORMATION
  Report Type: Spontaneous
  Country: US (occurrence: US)
  Receive Date: 20201223
  Receipt Date: 20201223
  Transmission Date: 20210114
  Serious: Yes (Other)
  Sender: FDA-Public Use
  Company Number: US-MTPC-MTDA2020-0073855

PATIENT
  Age: 79 Year
  Sex: Female

DRUGS (1)
  1. RADICAVA [Suspect]
     Active Substance: EDARAVONE
     Indication: AMYOTROPHIC LATERAL SCLEROSIS
     Dosage: 60 MILLIGRAM, QD FOR 10 DAYS WITHIN A 14-DAY PERIOD
     Route: 042

REACTIONS (2)
  - Poor venous access [Unknown]
  - Device occlusion [Unknown]

NARRATIVE: CASE EVENT DATE: 20201216
